FAERS Safety Report 6859937-6 (Version None)
Quarter: 2010Q3

REPORT INFORMATION
  Report Type: 
  Country: None (occurrence: None)
  Receive Date: 20100719
  Receipt Date: 20100719
  Transmission Date: 20110219
  Serious: Yes (Life-Threatening)
  Sender: FDA-Public Use
  Company Number: None

PATIENT
  Age: 72 Year
  Sex: Female
  Weight: 60.782 kg

DRUGS (2)
  1. COZAAR [Suspect]
     Indication: HYPERTENSION
     Dosage: 1 TABLET EVERY DAY MERCK + CO. FRANCE
     Dates: start: 20070101, end: 20100101
  2. COZAAR [Suspect]
     Indication: HYPERTENSION
     Dosage: 1 TABLET EVERY DAY MERCK + CO. FRANCE
     Dates: start: 20100702

REACTIONS (4)
  - BLOOD PRESSURE INCREASED [None]
  - PRODUCT COLOUR ISSUE [None]
  - PRODUCT FORMULATION ISSUE [None]
  - PRODUCT SUBSTITUTION ISSUE [None]
